FAERS Safety Report 18027522 (Version 2)
Quarter: 2020Q3

REPORT INFORMATION
  Report Type: Report from Study
  Country: ES (occurrence: ES)
  Receive Date: 20200716
  Receipt Date: 20200728
  Transmission Date: 20201103
  Serious: Yes (Hospitalization)
  Sender: FDA-Public Use
  Company Number: ES-TEVA-2020-ES-1799803

PATIENT
  Age: 56 Year
  Sex: Male

DRUGS (4)
  1. ACTIVATED CHARCOAL. [Suspect]
     Active Substance: ACTIVATED CHARCOAL
     Indication: TOXICITY TO VARIOUS AGENTS
     Dosage: 0.25 G/KG (AT A RATIO OF 4.3:1 WITH RESPECT TO THE TOTAL INGESTED DOSE)
     Route: 048
  2. QUETIAPINE. [Suspect]
     Active Substance: QUETIAPINE
     Dosage: TOTAL DOSE OF THREE PSYCHOTROPIC DRUGS?5750MG
     Route: 048
  3. PREGABALIN. [Suspect]
     Active Substance: PREGABALIN
     Dosage: TOTAL DOSE OF THREE PSYCHOTROPIC DRUGS?5750MG
     Route: 048
  4. TRAZODONE [Suspect]
     Active Substance: TRAZODONE HYDROCHLORIDE
     Dosage: TOTAL DOSE OF THREE PSYCHOTROPIC DRUGS?5750MG
     Route: 048

REACTIONS (4)
  - Depressed level of consciousness [Recovered/Resolved]
  - Toxicity to various agents [Unknown]
  - Overdose [Unknown]
  - Drug ineffective [Unknown]
